FAERS Safety Report 11129910 (Version 1)
Quarter: 2015Q2

REPORT INFORMATION
  Report Type: Spontaneous
  Country: US (occurrence: None)
  Receive Date: 20150520
  Receipt Date: 20150520
  Transmission Date: 20150821
  Serious: Yes (Other)
  Sender: FDA-Public Use
  Company Number: None

PATIENT
  Age: 48 Year
  Sex: Male
  Weight: 68.04 kg

DRUGS (1)
  1. TYLENOL [Suspect]
     Active Substance: ACETAMINOPHEN
     Indication: HEADACHE
     Dosage: 500 TAKEN BY MOUTH
     Route: 048
     Dates: start: 20150501, end: 20150502

REACTIONS (1)
  - Headache [None]

NARRATIVE: CASE EVENT DATE: 20150501
